FAERS Safety Report 4457504-5 (Version None)
Quarter: 2004Q3

REPORT INFORMATION
  Report Type: 
  Country: None (occurrence: None)
  Receive Date: 20040922
  Receipt Date: 20040910
  Transmission Date: 20050211
  Serious: Yes (Hospitalization)
  Sender: FDA-Public Use
  Company Number: 04P-163-0272907-00

PATIENT
  Sex: Female

DRUGS (5)
  1. HUMIRA [Suspect]
     Indication: RHEUMATOID ARTHRITIS
     Dosage: 40 MG, 1 IN 2 WK, SUBCUTANEOUS
     Route: 058
     Dates: start: 20040201, end: 20040801
  2. ESOMEPRAZOLE [Concomitant]
  3. FOLIC ACID [Concomitant]
  4. FLUOXETINE HYDROCHLORIDE [Concomitant]
  5. AMITRIPTYLINE HCL [Concomitant]

REACTIONS (6)
  - ANAEMIA [None]
  - DIZZINESS [None]
  - HEADACHE [None]
  - INJECTION SITE REACTION [None]
  - MENSTRUAL DISORDER [None]
  - VISUAL DISTURBANCE [None]
